FAERS Safety Report 10926733 (Version 1)
Quarter: 2015Q1

REPORT INFORMATION
  Report Type: Spontaneous
  Country: US (occurrence: None)
  Receive Date: 20150219
  Receipt Date: 20150219
  Transmission Date: 20150721
  Serious: Yes (Hospitalization)
  Sender: FDA-Public Use
  Company Number: AUR-APL-2014-13

PATIENT
  Age: 72 Year
  Sex: Female
  Weight: 130.2 kg

DRUGS (13)
  1. GABAPENTIN (GABAPENTIN) [Suspect]
     Active Substance: GABAPENTIN
     Indication: FIBROMYALGIA
     Route: 048
     Dates: start: 20120910
  2. LEVOTHYROXINE (LEVOTHYROXINE) [Suspect]
     Active Substance: LEVOTHYROXINE
     Indication: HYPOTHYROIDISM
     Route: 048
     Dates: start: 2004
  3. TORASEMIDE (TORASEMIDE) [Suspect]
     Active Substance: TORSEMIDE
     Indication: ATRIAL FIBRILLATION
     Route: 048
     Dates: start: 20090427
  4. MELOXICAM (MELOXICAM) [Suspect]
     Active Substance: MELOXICAM
     Indication: FIBROMYALGIA
     Route: 048
     Dates: end: 2007
  5. ASPIRIN (ACETYLSALICYLIC ACID) [Suspect]
     Active Substance: ASPIRIN
     Indication: ATRIAL FIBRILLATION
     Route: 048
     Dates: start: 20090427
  6. TORASEMIDE (TORASEMIDE) [Suspect]
     Active Substance: TORSEMIDE
     Indication: DIURETIC THERAPY
     Route: 048
     Dates: start: 20090427
  7. BISOPROLOL (BISOPROLOL) [Suspect]
     Active Substance: BISOPROLOL
     Indication: FIBROMYALGIA
     Route: 048
     Dates: start: 20090427
  8. POTASSIUM (POTASSIUM) [Suspect]
     Active Substance: POTASSIUM
     Indication: DIURETIC THERAPY
     Route: 048
     Dates: start: 20090427
  9. IRON (IRON) [Suspect]
     Active Substance: IRON
     Indication: ANAEMIA
     Route: 048
     Dates: start: 20090427
  10. TRAZODONE [Suspect]
     Active Substance: TRAZODONE HYDROCHLORIDE
     Indication: INSOMNIA
     Route: 048
     Dates: start: 2009
  11. MAGNESIUM OXIDE (MAGNESIUM OXIDE) [Suspect]
     Active Substance: MAGNESIUM OXIDE
     Indication: NUTRITIONAL SUPPLEMENTATION
     Route: 048
     Dates: start: 2010
  12. CITALOPRAM (CITALOPRAM) [Suspect]
     Active Substance: CITALOPRAM HYDROBROMIDE
     Indication: DEPRESSION
     Route: 048
     Dates: start: 1995
  13. TRAMADOL (TRAMADOL) [Suspect]
     Active Substance: TRAMADOL
     Indication: ABDOMINAL PAIN UPPER
     Route: 048
     Dates: start: 20141105

REACTIONS (1)
  - Gastritis [None]

NARRATIVE: CASE EVENT DATE: 20141102
